FAERS Safety Report 6998010-3 (Version None)
Quarter: 2010Q3

REPORT INFORMATION
  Report Type: 
  Country: None (occurrence: None)
  Receive Date: 20100920
  Receipt Date: 20091209
  Transmission Date: 20110219
  Serious: No
  Sender: FDA-Public Use
  Company Number: US-ASTRAZENECA-2006UW19007

PATIENT
  Age: 12042 Day
  Sex: Male
  Weight: 79.4 kg

DRUGS (12)
  1. SEROQUEL [Suspect]
     Indication: BIPOLAR DISORDER
     Route: 048
     Dates: start: 20040101, end: 20070201
  2. ZYPREXA [Suspect]
     Indication: BIPOLAR DISORDER
     Route: 048
     Dates: start: 20040102, end: 20040330
  3. TEGRETOL [Concomitant]
     Indication: AFFECTIVE DISORDER
     Route: 048
     Dates: start: 20020221
  4. HALDOL [Concomitant]
  5. GUAIFENESIN [Concomitant]
     Dosage: ONE TABLET TWICE A DAY
     Route: 048
  6. ATIVAN [Concomitant]
  7. DEPAKOTE [Concomitant]
  8. DILANTIN [Concomitant]
  9. PRAVASTATIN [Concomitant]
  10. TRAZODONE HCL [Concomitant]
  11. MIRTAZAPINE [Concomitant]
  12. ZANTAC [Concomitant]

REACTIONS (4)
  - DIABETES MELLITUS [None]
  - OBESITY [None]
  - TYPE 1 DIABETES MELLITUS [None]
  - TYPE 2 DIABETES MELLITUS [None]
